FAERS Safety Report 6823643-4 (Version None)
Quarter: 2010Q3

REPORT INFORMATION
  Report Type: 
  Country: None (occurrence: None)
  Receive Date: 20100708
  Receipt Date: 20070807
  Transmission Date: 20110219
  Serious: No
  Sender: FDA-Public Use
  Company Number: US-PFIZER INC-2006097282

PATIENT
  Sex: Male
  Weight: 83.91 kg

DRUGS (7)
  1. CHANTIX [Suspect]
     Indication: SMOKING CESSATION THERAPY
     Route: 065
     Dates: start: 20060724
  2. FISH OIL [Concomitant]
     Route: 065
  3. CRESTOR [Concomitant]
     Route: 065
  4. PLAVIX [Concomitant]
     Route: 065
  5. PREVACID [Concomitant]
     Route: 065
  6. ALL OTHER THERAPEUTIC PRODUCTS [Concomitant]
     Route: 065
  7. FLOMAX [Concomitant]
     Route: 065

REACTIONS (1)
  - DRUG INEFFECTIVE [None]
